FAERS Safety Report 14574209 (Version 4)
Quarter: 2018Q4

REPORT INFORMATION
  Report Type: Report from Study
  Country: US (occurrence: US)
  Receive Date: 20180226
  Receipt Date: 20181206
  Transmission Date: 20190204
  Serious: Yes (Life-Threatening, Hospitalization, Other)
  Sender: FDA-Public Use
  Company Number: US-ACTELION-A-NJ2018-167888

PATIENT
  Age: 16 Year
  Sex: Female
  Weight: 63.49 kg

DRUGS (5)
  1. REMODULIN [Concomitant]
     Active Substance: TREPROSTINIL
     Dosage: 128 NG/KG, PER MIN
  2. OPSUMIT [Suspect]
     Active Substance: MACITENTAN
     Indication: PULMONARY ARTERIAL HYPERTENSION
     Dosage: 10 MG, QD
     Route: 048
  3. WARFARIN [Concomitant]
     Active Substance: WARFARIN
     Dosage: 6 MG, QD
  4. ADCIRCA [Concomitant]
     Active Substance: TADALAFIL
     Dosage: 40 MG, QD
  5. DIGOXIN. [Concomitant]
     Active Substance: DIGOXIN
     Dosage: 125 MCG, QD

REACTIONS (14)
  - Presyncope [Recovered/Resolved]
  - Dyspnoea exertional [Not Recovered/Not Resolved]
  - Cardiac arrest [Recovered/Resolved]
  - Syncope [Recovered/Resolved]
  - Surgery [Unknown]
  - Feeling abnormal [Unknown]
  - Device issue [Unknown]
  - Atrial septal defect repair [Recovered/Resolved]
  - Pulmonary oedema [Unknown]
  - Oxygen saturation [Unknown]
  - Pulmonary hypertension [Unknown]
  - Dizziness [Recovered/Resolved]
  - Disorientation [Recovered/Resolved]
  - Balloon atrial septostomy [Recovered/Resolved]

NARRATIVE: CASE EVENT DATE: 20180122
